FAERS Safety Report 22659602 (Version 3)
Quarter: 2024Q3

REPORT INFORMATION
  Report Type: Spontaneous
  Country: CN (occurrence: CN)
  Receive Date: 20230630
  Receipt Date: 20240828
  Transmission Date: 20241017
  Serious: Yes (Death, Life-Threatening, Other)
  Sender: PFIZER
  Company Number: CN-MLMSERVICE-20230619-4355685-1

PATIENT
  Age: 63 Year
  Sex: Male

DRUGS (7)
  1. CISPLATIN [Suspect]
     Active Substance: CISPLATIN
     Indication: Lung squamous cell carcinoma stage II
     Dosage: ON DAYS 1-3 (DP REGIMEN)
  2. CISPLATIN [Suspect]
     Active Substance: CISPLATIN
     Dosage: ON DAYS 1-3 (GP REGIMEN)
  3. CARBOPLATIN [Suspect]
     Active Substance: CARBOPLATIN
     Indication: Lung squamous cell carcinoma stage II
     Dosage: ON DAYS 1
  4. DOCETAXEL [Suspect]
     Active Substance: DOCETAXEL\DOCETAXEL ANHYDROUS
     Indication: Lung squamous cell carcinoma stage II
     Dosage: ON DAY 1
  5. GEMCITABINE [Suspect]
     Active Substance: GEMCITABINE
     Indication: Lung squamous cell carcinoma stage II
     Dosage: ON DAY 1, 8
  6. PACLITAXEL [Suspect]
     Active Substance: PACLITAXEL
     Indication: Lung squamous cell carcinoma stage II
     Dosage: ON DAYS 1
  7. AZACITIDINE [Concomitant]
     Active Substance: AZACITIDINE
     Indication: Chronic myelomonocytic leukaemia
     Dosage: ON DAYS 1-7

REACTIONS (3)
  - Neoplasm progression [Fatal]
  - Myelosuppression [Unknown]
  - Leukostasis syndrome [Fatal]
